FAERS Safety Report 4570596-8 (Version None)
Quarter: 2005Q1

REPORT INFORMATION
  Report Type: 
  Country: None (occurrence: None)
  Receive Date: 20050204
  Receipt Date: 20040511
  Transmission Date: 20050727
  Serious: Yes (Other)
  Sender: FDA-Public Use
  Company Number: 2004JP000858

PATIENT
  Age: 32 Year
  Sex: Male
  Weight: 72 kg

DRUGS (3)
  1. AMOXICILLIN [Suspect]
     Dosage: 1500MG PER DAY
     Route: 048
     Dates: start: 20040413, end: 20040414
  2. LANSOPRAZOLE [Suspect]
     Dosage: 30MG TWICE PER DAY
     Route: 048
     Dates: start: 20040413, end: 20040414
  3. CLARITHROMYCIN [Suspect]
     Dosage: 40MG PER DAY
     Route: 048
     Dates: start: 20040413, end: 20040414

REACTIONS (7)
  - BLISTER [None]
  - CHILLS [None]
  - ERYTHEMA [None]
  - GENERALISED ERYTHEMA [None]
  - PRURITUS [None]
  - SWELLING [None]
  - TOXIC SKIN ERUPTION [None]
